FAERS Safety Report 12784184 (Version 1)
Quarter: 2016Q3

REPORT INFORMATION
  Report Type: Spontaneous
  Country: FR (occurrence: FR)
  Receive Date: 20160927
  Receipt Date: 20160927
  Transmission Date: 20161109
  Serious: Yes (Hospitalization)
  Sender: FDA-Public Use
  Company Number: FR-PFIZER INC-2016432710

PATIENT
  Age: 55 Year
  Sex: Female

DRUGS (3)
  1. GLIVEC [Suspect]
     Active Substance: IMATINIB MESYLATE
     Dosage: 400 MG, 2X/DAY
     Route: 048
     Dates: start: 20120921, end: 20121004
  2. ZAVEDOS [Suspect]
     Active Substance: IDARUBICIN
     Dosage: 1.7 MG, 1X/DAY
     Route: 042
     Dates: start: 20120921, end: 20120925
  3. CYTARABINE ACCORD [Suspect]
     Active Substance: CYTARABINE
     Dosage: 171 MG, 1X/DAY
     Route: 042
     Dates: start: 20120921, end: 20120927

REACTIONS (7)
  - Bone marrow failure [Unknown]
  - Renal failure [Unknown]
  - Hepatic failure [Unknown]
  - Toxic skin eruption [Unknown]
  - Face oedema [Unknown]
  - Mucosal inflammation [Unknown]
  - Streptococcal sepsis [Unknown]

NARRATIVE: CASE EVENT DATE: 20121001
